FAERS Safety Report 9067751 (Version 2)
Quarter: 2013Q1

REPORT INFORMATION
  Report Type: Spontaneous
  Country: US (occurrence: US)
  Receive Date: 20130206
  Receipt Date: 20130321
  Transmission Date: 20140127
  Serious: Yes (Other)
  Sender: FDA-Public Use
  Company Number: US-PFIZER INC-2013049583

PATIENT
  Age: 56 Year
  Sex: Female
  Weight: 82.99 kg

DRUGS (4)
  1. EFFEXOR XR [Suspect]
     Indication: MENTAL DISORDER
     Dosage: 2 CAPSULES OF 75 MG, 1X/DAY
     Route: 048
     Dates: start: 2008
  2. TRAMADOL [Concomitant]
     Indication: BACK INJURY
     Dosage: UNK, 1X/DAY
  3. LISINOPRIL [Concomitant]
     Dosage: 5 MG, UNK
  4. LEVOTHYROXINE [Concomitant]
     Indication: THYROID DISORDER
     Dosage: 25 MG, UNK

REACTIONS (1)
  - Diabetes mellitus [Unknown]
